FAERS Safety Report 16669939 (Version 4)
Quarter: 2020Q1

REPORT INFORMATION
  Report Type: Report from Study
  Country: US (occurrence: US)
  Receive Date: 20190805
  Receipt Date: 20200326
  Transmission Date: 20200409
  Serious: Yes (Hospitalization, Other)
  Sender: FDA-Public Use
  Company Number: US-ACTELION-A-NJ2018-181950

PATIENT
  Sex: Female
  Weight: 93.42 kg

DRUGS (1)
  1. TRACLEER [Suspect]
     Active Substance: BOSENTAN
     Indication: PULMONARY ARTERIAL HYPERTENSION
     Dosage: 125 MG, BID
     Route: 048

REACTIONS (15)
  - Rib fracture [Unknown]
  - Dyspnoea [Not Recovered/Not Resolved]
  - Sleep apnoea syndrome [Not Recovered/Not Resolved]
  - Hip surgery [Unknown]
  - Insomnia [Unknown]
  - Cyst removal [Unknown]
  - Fatigue [Not Recovered/Not Resolved]
  - Fall [Unknown]
  - Lower limb fracture [Unknown]
  - Anxiety [Unknown]
  - General physical health deterioration [Unknown]
  - Hypoacusis [Unknown]
  - Visual impairment [Unknown]
  - Lithiasis [Unknown]
  - Disability [Unknown]
